FAERS Safety Report 8534137-2 (Version None)
Quarter: 2012Q3

REPORT INFORMATION
  Report Type: 
  Country: None (occurrence: None)
  Receive Date: 20120724
  Receipt Date: 20120716
  Transmission Date: 20120928
  Serious: No
  Sender: FDA-Public Use
  Company Number: US-SHIRE-ALL1-2012-02269

PATIENT
  Sex: Female

DRUGS (5)
  1. FOSAMAX [Concomitant]
     Indication: PRODUCT USED FOR UNKNOWN INDICATION
     Dosage: 70 MG, UNKNOWN
     Route: 065
  2. ALEVE [Concomitant]
     Indication: PRODUCT USED FOR UNKNOWN INDICATION
     Dosage: 220 MG, 1X/DAY:QD
     Route: 065
  3. DIOVAN [Concomitant]
     Indication: PRODUCT USED FOR UNKNOWN INDICATION
     Dosage: 160 MG, 1X/DAY:QD
     Route: 065
  4. VPRIV [Suspect]
     Indication: GAUCHER'S DISEASE
     Dosage: 60 IU/KG, 1X/2WKS
     Route: 041
  5. ENABLEX                            /01760401/ [Concomitant]
     Indication: PRODUCT USED FOR UNKNOWN INDICATION
     Dosage: UNK, UNKNOWN
     Route: 065

REACTIONS (2)
  - DEPRESSION [None]
  - ANXIETY [None]
